FAERS Safety Report 5379730-3 (Version None)
Quarter: 2007Q3

REPORT INFORMATION
  Report Type: 
  Country: None (occurrence: None)
  Receive Date: 20070706
  Receipt Date: 20070628
  Transmission Date: 20080115
  Serious: Yes (Other)
  Sender: FDA-Public Use
  Company Number: PHBS2007BR10023

PATIENT
  Age: 60 Year
  Sex: Female
  Weight: 63 kg

DRUGS (5)
  1. FORADIL [Suspect]
     Indication: BRONCHITIS
     Dosage: UNK, BID
  2. MIFLASONA [Concomitant]
     Indication: BRONCHITIS
     Dosage: UNK, BID
  3. SINGULAIR [Concomitant]
     Indication: BRONCHITIS
  4. ASCORBIC ACID [Concomitant]
     Indication: HEPATIC STEATOSIS
  5. VITAMIN E [Concomitant]
     Indication: HEPATIC STEATOSIS

REACTIONS (5)
  - ASTHMA [None]
  - CHEST DISCOMFORT [None]
  - DYSPNOEA [None]
  - FATIGUE [None]
  - HEPATIC STEATOSIS [None]
